FAERS Safety Report 16419275 (Version 2)
Quarter: 2019Q3

REPORT INFORMATION
  Report Type: Report from Study
  Country: UY (occurrence: UY)
  Receive Date: 20190612
  Receipt Date: 20190703
  Transmission Date: 20191004
  Serious: Yes (Other)
  Sender: FDA-Public Use
  Company Number: UY-SA-2019SA155659

PATIENT
  Age: 80 Year
  Sex: Female

DRUGS (2)
  1. INSULIN GLARGINE [Suspect]
     Active Substance: INSULIN GLARGINE
     Indication: TYPE 2 DIABETES MELLITUS
     Dosage: 22 U
     Route: 058
     Dates: start: 2017
  2. NOVORAPID [Concomitant]
     Active Substance: INSULIN ASPART
     Indication: TYPE 2 DIABETES MELLITUS
     Dosage: 9 U AS PER VALUE

REACTIONS (4)
  - Glycosylated haemoglobin increased [Unknown]
  - Lipodystrophy acquired [Unknown]
  - Pancreatic neoplasm [Unknown]
  - Bile duct obstruction [Unknown]
